FAERS Safety Report 24336417 (Version 1)
Quarter: 2024Q3

REPORT INFORMATION
  Report Type: Spontaneous
  Country: CN (occurrence: CN)
  Receive Date: 20240919
  Receipt Date: 20240919
  Transmission Date: 20241016
  Serious: No
  Sender: ROCHE
  Company Number: CN-ROCHE-3554428

PATIENT
  Age: 82 Year
  Sex: Male

DRUGS (4)
  1. TAMIFLU [Suspect]
     Active Substance: OSELTAMIVIR PHOSPHATE
     Indication: Anti-infective therapy
     Route: 048
     Dates: start: 20240408, end: 20240409
  2. PIPERACILLIN SODIUM;SULBACTAM [Concomitant]
     Indication: Anti-infective therapy
  3. BUDESONIDE [Concomitant]
     Active Substance: BUDESONIDE
  4. LEVALBUTEROL [Concomitant]
     Active Substance: LEVALBUTEROL

REACTIONS (1)
  - Gastrointestinal disorder [Recovering/Resolving]

NARRATIVE: CASE EVENT DATE: 20240408
